FAERS Safety Report 6493560-0 (Version None)
Quarter: 2009Q4

REPORT INFORMATION
  Report Type: 
  Country: None (occurrence: None)
  Receive Date: 20091214
  Receipt Date: 20090408
  Transmission Date: 20100525
  Serious: Yes (Death, Life-Threatening, Hospitalization)
  Sender: FDA-Public Use
  Company Number: US-SANOFI-AVENTIS-D01200808270

PATIENT
  Age: 88 Year
  Sex: Male
  Weight: 74.8 kg

DRUGS (2)
  1. CLOPIDOGREL BISULFATE [Suspect]
     Indication: ATRIAL FIBRILLATION
     Dosage: UNIT DOSE: 75 MG
     Route: 048
     Dates: start: 20050315, end: 20081110
  2. ASPIRIN [Concomitant]
     Indication: ATRIAL FIBRILLATION
     Route: 048
     Dates: start: 20050315

REACTIONS (2)
  - FALL [None]
  - HAEMORRHAGIC STROKE [None]
